FAERS Safety Report 10651552 (Version 3)
Quarter: 2018Q1

REPORT INFORMATION
  Report Type: Spontaneous
  Country: US (occurrence: US)
  Receive Date: 20141215
  Receipt Date: 20180316
  Transmission Date: 20180508
  Serious: Yes (Hospitalization, Other)
  Sender: FDA-Public Use
  Company Number: US-ELI_LILLY_AND_COMPANY-US201412001062

PATIENT
  Age: 61 Year
  Sex: Male
  Weight: 88.44 kg

DRUGS (13)
  1. EFFIENT [Concomitant]
     Active Substance: PRASUGREL HYDROCHLORIDE
     Indication: THROMBOSIS
     Dosage: UNK, UNKNOWN
     Dates: start: 201110, end: 201208
  2. METOPROLOL SUCCINATE. [Concomitant]
     Active Substance: METOPROLOL SUCCINATE
     Indication: HYPERTENSION
     Dosage: UNK, UNKNOWN
     Dates: start: 200708
  3. CLOPIDOGREL [Concomitant]
     Active Substance: CLOPIDOGREL BISULFATE
     Indication: THROMBOSIS
     Dosage: UNK, UNKNOWN
     Dates: start: 201209
  4. AXIRON [Suspect]
     Active Substance: TESTOSTERONE
     Indication: ASTHENIA
     Dosage: 30 MG, BID
     Route: 065
     Dates: start: 20121026, end: 20121125
  5. PRAVASTATIN SODIUM. [Concomitant]
     Active Substance: PRAVASTATIN SODIUM
     Indication: BLOOD CHOLESTEROL
     Dosage: UNK, UNKNOWN
     Dates: start: 201003
  6. FENOFIBRATO [Concomitant]
     Active Substance: FENOFIBRATE
     Indication: BLOOD CHOLESTEROL
     Dosage: UNK, UNKNOWN
     Dates: start: 201105
  7. AXIRON [Suspect]
     Active Substance: TESTOSTERONE
     Indication: FATIGUE
     Dosage: 30 MG, BID
     Route: 065
     Dates: end: 20121209
  8. GLIMEPIRIDE. [Concomitant]
     Active Substance: GLIMEPIRIDE
     Indication: DIABETES MELLITUS
     Dosage: UNK, UNKNOWN
     Dates: start: 201105
  9. AXIRON [Suspect]
     Active Substance: TESTOSTERONE
     Indication: BLOOD TESTOSTERONE DECREASED
     Dosage: 30 MG, BID
     Route: 065
     Dates: start: 20120601, end: 20120823
  10. AXIRON [Suspect]
     Active Substance: TESTOSTERONE
     Indication: LIBIDO DECREASED
  11. METFORMIN [Concomitant]
     Active Substance: METFORMIN HYDROCHLORIDE
     Indication: DIABETES MELLITUS
     Dosage: UNK, UNKNOWN
     Dates: start: 200707
  12. ENALAPRIL MALEATE. [Concomitant]
     Active Substance: ENALAPRIL MALEATE
     Indication: HYPERTENSION
     Dosage: UNK UNK, UNKNOWN
     Dates: start: 200707
  13. ENALAPRIL MALEATE. [Concomitant]
     Active Substance: ENALAPRIL MALEATE
     Indication: CARDIAC FAILURE CHRONIC

REACTIONS (10)
  - Cerebrovascular accident [Not Recovered/Not Resolved]
  - Balance disorder [Not Recovered/Not Resolved]
  - Speech disorder [Not Recovered/Not Resolved]
  - Inappropriate schedule of drug administration [Unknown]
  - Acute myocardial infarction [Not Recovered/Not Resolved]
  - Coronary artery disease [Not Recovered/Not Resolved]
  - Asthenia [Not Recovered/Not Resolved]
  - Dysphagia [Not Recovered/Not Resolved]
  - Acute coronary syndrome [Not Recovered/Not Resolved]
  - Memory impairment [Not Recovered/Not Resolved]

NARRATIVE: CASE EVENT DATE: 20120927
